FAERS Safety Report 21525326 (Version 1)
Quarter: 2022Q4

REPORT INFORMATION
  Report Type: Spontaneous
  Country: NL (occurrence: NL)
  Receive Date: 20221030
  Receipt Date: 20221030
  Transmission Date: 20230113
  Serious: Yes (Other)
  Sender: FDA-Public Use
  Company Number: None

PATIENT
  Sex: Male
  Weight: 79 kg

DRUGS (1)
  1. AMOXICILLIN [Suspect]
     Active Substance: AMOXICILLIN
     Indication: Pneumonia
     Dosage: UNK (3 X PER DAG 1 STUKS)
     Route: 065
     Dates: start: 20221005

REACTIONS (3)
  - Arrhythmia [Recovering/Resolving]
  - Pyrexia [Not Recovered/Not Resolved]
  - Fatigue [Recovering/Resolving]
